FAERS Safety Report 9114369 (Version 1)
Quarter: 2013Q1

REPORT INFORMATION
  Report Type: Spontaneous
  Country: US (occurrence: US)
  Receive Date: 20130208
  Receipt Date: 20130208
  Transmission Date: 20140127
  Serious: Yes (Other)
  Sender: FDA-Public Use
  Company Number: CHPA2013US002004

PATIENT
  Age: 77 Year
  Sex: Female

DRUGS (2)
  1. EXCEDRIN EXTRA STRENGTH [Suspect]
     Indication: HEADACHE
     Dosage: 1 PILL EVERY 6 TO 7 HOURS AS NEEDED
     Route: 048
     Dates: start: 2010
  2. TYLENOL [Concomitant]

REACTIONS (4)
  - Herpes zoster [Not Recovered/Not Resolved]
  - Off label use [Unknown]
  - Expired drug administered [Unknown]
  - Incorrect dose administered [Unknown]
